FAERS Safety Report 11753898 (Version 2)
Quarter: 2016Q1

REPORT INFORMATION
  Report Type: Spontaneous
  Country: US (occurrence: US)
  Receive Date: 20151119
  Receipt Date: 20160105
  Transmission Date: 20160525
  Serious: Yes (Other)
  Sender: FDA-Public Use
  Company Number: US-BAYER-2015-468139

PATIENT
  Age: 59 Year
  Sex: Male

DRUGS (11)
  1. ALPRAZOLAM. [Concomitant]
     Active Substance: ALPRAZOLAM
  2. XOFIGO [Suspect]
     Active Substance: RADIUM RA-223 DICHLORIDE
     Indication: BONE PAIN
  3. FLOMAX (TAMSULOSIN) [Concomitant]
  4. XOFIGO [Suspect]
     Active Substance: RADIUM RA-223 DICHLORIDE
     Indication: PROSTATE CANCER METASTATIC
     Dosage: UNK
     Route: 042
     Dates: start: 20150923, end: 20150923
  5. PREDNISONE. [Concomitant]
     Active Substance: PREDNISONE
  6. THIAMINE. [Concomitant]
     Active Substance: THIAMINE
  7. NORCO [Concomitant]
     Active Substance: ACETAMINOPHEN\HYDROCODONE BITARTRATE
  8. ERGOCALCIFEROL. [Concomitant]
     Active Substance: ERGOCALCIFEROL
  9. SENNA [Concomitant]
     Active Substance: SENNA LEAF\SENNOSIDES\SENNOSIDES A AND B
  10. DENOSUMAB [Concomitant]
     Active Substance: DENOSUMAB
  11. MS CONTIN [Concomitant]
     Active Substance: MORPHINE SULFATE

REACTIONS (4)
  - Drug intolerance [None]
  - Pain [None]
  - Pelvic mass [None]
  - Metastases to bone [None]
